FAERS Safety Report 7869259-2 (Version None)
Quarter: 2011Q4

REPORT INFORMATION
  Report Type: 
  Country: None (occurrence: None)
  Receive Date: 20111028
  Receipt Date: 20101229
  Transmission Date: 20120403
  Serious: No
  Sender: FDA-Public Use
  Company Number: US-AMGEN-USASP2010005390

PATIENT
  Age: 51 Year
  Sex: Female
  Weight: 211.4 kg

DRUGS (1)
  1. ENBREL [Suspect]
     Indication: RHEUMATOID ARTHRITIS
     Dosage: 50 MG, QWK
     Route: 058
     Dates: start: 20100607

REACTIONS (6)
  - HEADACHE [None]
  - RHINITIS [None]
  - FATIGUE [None]
  - WHEEZING [None]
  - COUGH [None]
  - DYSPNOEA [None]
